FAERS Safety Report 14956976 (Version 2)
Quarter: 2018Q2

REPORT INFORMATION
  Report Type: Spontaneous
  Country: US (occurrence: US)
  Receive Date: 20180531
  Receipt Date: 20180601
  Transmission Date: 20180711
  Serious: No
  Sender: FDA-Public Use
  Company Number: US-LUNDBECK-DKLU2049080

PATIENT
  Age: 17 Year
  Sex: Female

DRUGS (4)
  1. NORTHERA [Suspect]
     Active Substance: DROXIDOPA
     Indication: AUTONOMIC NEUROPATHY
     Route: 048
  2. CLARITIN [Suspect]
     Active Substance: LORATADINE
     Indication: HYPERSENSITIVITY
     Route: 065
  3. NORTHERA [Suspect]
     Active Substance: DROXIDOPA
     Indication: ORTHOSTATIC HYPOTENSION
     Dosage: TITRATING
     Route: 048
     Dates: start: 20180414
  4. NORTHERA [Suspect]
     Active Substance: DROXIDOPA
     Route: 048
     Dates: start: 20180421

REACTIONS (10)
  - Condition aggravated [Unknown]
  - Headache [Unknown]
  - Anxiety [Unknown]
  - Stress [Unknown]
  - Confusional state [Unknown]
  - Depressed mood [Unknown]
  - Tremor [Unknown]
  - Hypersomnia [Unknown]
  - Irritability [Unknown]
  - Fatigue [Unknown]

NARRATIVE: CASE EVENT DATE: 201804
